FAERS Safety Report 7038707-2 (Version None)
Quarter: 2010Q4

REPORT INFORMATION
  Report Type: 
  Country: None (occurrence: None)
  Receive Date: 20101012
  Receipt Date: 20101004
  Transmission Date: 20110411
  Serious: Yes (Hospitalization)
  Sender: FDA-Public Use
  Company Number: US-RANBAXY-2010US-38564

PATIENT

DRUGS (1)
  1. IBUPROFEN [Suspect]
     Indication: PRODUCT USED FOR UNKNOWN INDICATION
     Dosage: 450 TABLETS OF 200 MG, UNK
     Route: 048

REACTIONS (4)
  - COMA [None]
  - METABOLIC ACIDOSIS [None]
  - OVERDOSE [None]
  - POLYURIA [None]
